FAERS Safety Report 4586079-5 (Version None)
Quarter: 2005Q1

REPORT INFORMATION
  Report Type: 
  Country: None (occurrence: None)
  Receive Date: 20050125
  Receipt Date: 20040908
  Transmission Date: 20050727
  Serious: No
  Sender: FDA-Public Use
  Company Number: USA040977732

PATIENT
  Age: 92 Year
  Sex: Female

DRUGS (8)
  1. FORTEO [Suspect]
     Indication: OSTEOPOROSIS
     Dosage: 20 UG/1 DAY
     Dates: start: 20040501
  2. ZYPREXA [Suspect]
     Indication: DEPRESSION
     Dates: start: 20040701, end: 20040701
  3. PAXIL [Concomitant]
  4. NORTRIPTYLINE HCL [Concomitant]
  5. CALCITONIN [Concomitant]
  6. CALCIUM GLUCONATE [Concomitant]
  7. VIOXX [Concomitant]
  8. ASPIRIN [Concomitant]

REACTIONS (4)
  - CONTUSION [None]
  - DIZZINESS [None]
  - FALL [None]
  - SPINAL FRACTURE [None]
